FAERS Safety Report 23149083 (Version 3)
Quarter: 2023Q4

REPORT INFORMATION
  Report Type: Report from Study
  Country: CN (occurrence: CN)
  Receive Date: 20231106
  Receipt Date: 20231114
  Transmission Date: 20240110
  Serious: Yes (Death, Hospitalization)
  Sender: FDA-Public Use
  Company Number: CN-BAYER-2023A136859

PATIENT
  Age: 73 Year
  Sex: Male

DRUGS (5)
  1. REGORAFENIB [Suspect]
     Active Substance: REGORAFENIB
     Indication: Colorectal cancer
     Dosage: 120 MG, QD, EVERY FOUR WEEKS WAS A DOSING CYCLE, TAKING REGORAFENIB FROM DAY1 TO DAY21 EVERY CYCLE
     Route: 048
     Dates: start: 20230905, end: 20230912
  2. REGORAFENIB [Suspect]
     Active Substance: REGORAFENIB
     Indication: Colorectal cancer
     Dosage: 80 MG, QD, EVERY FOUR WEEKS WAS A DOSING CYCLE, TAKING REGORAFENIB FROM DAY1 TO DAY21 EVERY CYCLE
     Route: 048
     Dates: start: 20230913, end: 20230925
  3. REGORAFENIB [Suspect]
     Active Substance: REGORAFENIB
     Indication: Colorectal cancer
     Dosage: 80 MG, QD, EVERY FOUR WEEKS WAS A DOSING CYCLE, TAKING REGORAFENIB FROM DAY1 TO DAY21 EVERY CYCLE
     Route: 048
     Dates: start: 20231002, end: 20231004
  4. NIVOLUMAB [Concomitant]
     Active Substance: NIVOLUMAB
     Dosage: UNK
  5. NIVOLUMAB [Concomitant]
     Active Substance: NIVOLUMAB
     Dosage: DOSE REDUCED

REACTIONS (8)
  - Intestinal obstruction [Fatal]
  - Blood bilirubin increased [Fatal]
  - Pneumonia [Fatal]
  - Diarrhoea [Recovered/Resolved]
  - Blood pressure increased [None]
  - Heart rate increased [None]
  - Lymphocyte percentage decreased [None]
  - Lymphocyte count decreased [None]

NARRATIVE: CASE EVENT DATE: 20230911
